FAERS Safety Report 24528530 (Version 3)
Quarter: 2025Q4

REPORT INFORMATION
  Report Type: Report from Study
  Country: US (occurrence: US)
  Receive Date: 20241021
  Receipt Date: 20251003
  Transmission Date: 20260117
  Serious: No
  Sender: ABBVIE
  Company Number: US-ABBVIE-5969996

PATIENT
  Sex: Male

DRUGS (1)
  1. HUMIRA [Suspect]
     Active Substance: ADALIMUMAB
     Indication: Skin disorder
     Dosage: UNKNOWN
     Route: 058

REACTIONS (5)
  - Gait disturbance [Recovered/Resolved]
  - Muscle spasms [Unknown]
  - Device issue [Unknown]
  - Limb discomfort [Recovered/Resolved]
  - Stress [Recovered/Resolved]
